FAERS Safety Report 9192117 (Version 1)
Quarter: 2013Q1

REPORT INFORMATION
  Report Type: Spontaneous
  Country: US (occurrence: None)
  Receive Date: 20120703
  Receipt Date: 20120703
  Transmission Date: 20140127
  Serious: No
  Sender: FDA-Public Use
  Company Number: PHEH2012US008380

PATIENT
  Age: 25 Year
  Sex: Female

DRUGS (5)
  1. GILENYA (FTY)CAPSULE, 0.5 MG [Suspect]
     Indication: MULTIPLE SCLEROSIS
     Route: 048
     Dates: start: 20111214, end: 201204
  2. CYMBALTA (DULOXETINE HYDROCHLORIDE) [Concomitant]
  3. ZYRTEC (CETIRIZINE HYDROCHLORIDE) [Concomitant]
  4. NUVIGIL (ARMODAFINIL) [Concomitant]
  5. SEASONALE (ETHINYLESTRADIOL, LEVONOORGESTREL) [Concomitant]

REACTIONS (6)
  - Nervousness [None]
  - Chest discomfort [None]
  - Hypoaesthesia [None]
  - Tremor [None]
  - Fatigue [None]
  - Dizziness [None]
